FAERS Safety Report 7624555-9 (Version None)
Quarter: 2011Q3

REPORT INFORMATION
  Report Type: 
  Country: None (occurrence: None)
  Receive Date: 20110712
  Receipt Date: 20110705
  Transmission Date: 20111222
  Serious: Yes (Other)
  Sender: FDA-Public Use
  Company Number: 2011SP031225

PATIENT
  Age: 51 Year
  Sex: Female

DRUGS (6)
  1. SAPHRIS [Suspect]
     Indication: AFFECTIVE DISORDER
     Dosage: 20 MG; PRN;SL
     Route: 059
     Dates: start: 20110331
  2. XANAX [Suspect]
     Indication: PRODUCT USED FOR UNKNOWN INDICATION
     Dates: end: 20110101
  3. EFFEXOR [Suspect]
     Indication: OBSESSIVE-COMPULSIVE DISORDER
     Dosage: 112.5 MG;QPM;PO; 75 MG;QPW;PO
     Route: 048
  4. KLONOPIN [Suspect]
     Indication: ANXIETY
     Dosage: 1 MG;BID;PO
     Route: 048
     Dates: start: 20110603
  5. TRILEPTAL [Concomitant]
  6. ABILIFY [Suspect]
     Indication: AFFECTIVE DISORDER
     Dosage: 2 MG;QD;PO
     Route: 048
     Dates: start: 20110301

REACTIONS (4)
  - WEIGHT INCREASED [None]
  - MANIA [None]
  - SEROTONIN SYNDROME [None]
  - ANXIETY [None]
